FAERS Safety Report 5165738-X (Version None)
Quarter: 2006Q4

REPORT INFORMATION
  Report Type: 
  Country: None (occurrence: None)
  Receive Date: 20061128
  Receipt Date: 20061117
  Transmission Date: 20070319
  Serious: Yes (Hospitalization)
  Sender: FDA-Public Use
  Company Number: TAP2006Q01899

PATIENT
  Age: 83 Year
  Sex: Male

DRUGS (8)
  1. LUPRON DEPOT-4 [Suspect]
     Indication: PROSTATE CANCER
     Dosage: 30 MG, 1 IN 4 M, INTRAMUSCULAR
     Route: 030
     Dates: start: 20050804
  2. NITRO (GLYCERYL TRINITRATE) [Concomitant]
  3. PANTOPRAZOLE SODIUM [Concomitant]
  4. NOVO-PINDOL (PINDOLOL) [Concomitant]
  5. NOVO-DILTIAZEM (DILTIAZEM) [Concomitant]
  6. DETROL [Concomitant]
  7. CASODEX [Concomitant]
  8. NITRO-DUR [Concomitant]

REACTIONS (2)
  - CORONARY ARTERY OCCLUSION [None]
  - HOT FLUSH [None]
